FAERS Safety Report 10248812 (Version 1)
Quarter: 2014Q2

REPORT INFORMATION
  Report Type: Spontaneous
  Country: ES (occurrence: ES)
  Receive Date: 20140620
  Receipt Date: 20140620
  Transmission Date: 20141212
  Serious: Yes (Death, Other)
  Sender: FDA-Public Use
  Company Number: ES-JNJFOC-20140606711

PATIENT
  Sex: 0

DRUGS (7)
  1. DOXORUBICIN [Suspect]
     Indication: NEOPLASM MALIGNANT
     Route: 042
  2. EPIRUBICIN [Suspect]
     Indication: NEOPLASM MALIGNANT
     Dosage: ABOVE 935 MG/M2
     Route: 065
  3. DAUNORUBICIN [Suspect]
     Indication: NEOPLASM MALIGNANT
     Dosage: ABOVE 900 MG/M2
     Route: 065
  4. RADIOTHERAPY [Suspect]
     Indication: NEOPLASM MALIGNANT
     Route: 065
  5. VINCA ALKALOIDS AND ANALOGUES [Suspect]
     Indication: NEOPLASM MALIGNANT
     Route: 065
  6. 5 FLUOROURACIL [Suspect]
     Indication: NEOPLASM MALIGNANT
     Route: 065
  7. CYCLOPHOSPHAMIDE [Suspect]
     Indication: NEOPLASM MALIGNANT
     Route: 065

REACTIONS (14)
  - Pulmonary hypertension [Fatal]
  - Acute myocardial infarction [Fatal]
  - Neoplasm progression [Fatal]
  - Coronary artery disease [Unknown]
  - Mitral valve incompetence [Unknown]
  - Cardiomyopathy [Unknown]
  - Restrictive cardiomyopathy [Unknown]
  - Acute coronary syndrome [Unknown]
  - Congestive cardiomyopathy [Unknown]
  - Systolic dysfunction [Unknown]
  - Ejection fraction decreased [Unknown]
  - Cardiac failure acute [Unknown]
  - Arrhythmia [Unknown]
  - Right ventricular failure [Unknown]
